FAERS Safety Report 6100434-3 (Version None)
Quarter: 2009Q1

REPORT INFORMATION
  Report Type: 
  Country: None (occurrence: None)
  Receive Date: 20090303
  Receipt Date: 20090223
  Transmission Date: 20090719
  Serious: Yes (Hospitalization)
  Sender: FDA-Public Use
  Company Number: US-JNJFOC-20090205823

PATIENT
  Sex: Male
  Weight: 65.5 kg

DRUGS (3)
  1. INFLIXIMAB [Suspect]
     Route: 042
  2. INFLIXIMAB [Suspect]
     Indication: INFLAMMATORY BOWEL DISEASE
     Route: 042
  3. CORTIFOAM [Concomitant]
     Route: 054

REACTIONS (2)
  - COLECTOMY TOTAL [None]
  - SMALL INTESTINAL OBSTRUCTION [None]
